FAERS Safety Report 13984585 (Version 1)
Quarter: 2017Q3

REPORT INFORMATION
  Report Type: Spontaneous
  Country: SE (occurrence: SE)
  Receive Date: 20170918
  Receipt Date: 20170918
  Transmission Date: 20171128
  Serious: Yes (Hospitalization)
  Sender: FDA-Public Use
  Company Number: SE-MYLANLABS-2017M1056289

PATIENT
  Age: 82 Year
  Sex: Female

DRUGS (1)
  1. ERY-MAX [Suspect]
     Active Substance: ERYTHROMYCIN
     Indication: PRODUCT USED FOR UNKNOWN INDICATION
     Dosage: UNK

REACTIONS (4)
  - Feeling abnormal [Unknown]
  - Cold sweat [Unknown]
  - Palpitations [Unknown]
  - Abdominal pain upper [Unknown]
